FAERS Safety Report 9140794 (Version 1)
Quarter: 2013Q1

REPORT INFORMATION
  Report Type: Spontaneous
  Country: US (occurrence: US)
  Receive Date: 20130305
  Receipt Date: 20130305
  Transmission Date: 20140127
  Serious: Yes (Death)
  Sender: FDA-Public Use
  Company Number: US-ENDO PHARMACEUTICALS INC.-OPIR20100050

PATIENT
  Age: 19 Year
  Sex: Male
  Weight: 81.72 kg

DRUGS (5)
  1. OPANA [Suspect]
     Indication: DRUG ABUSE
     Dosage: UNK
  2. ALPRAZOLAM [Suspect]
     Indication: DRUG ABUSE
     Dosage: UNK
  3. ETHANOL [Suspect]
     Indication: ALCOHOL ABUSE
     Dosage: UNK
     Route: 048
  4. HYDROCODONE [Suspect]
     Indication: DRUG ABUSE
     Dosage: UNK
  5. MEPHEDRONE [Suspect]
     Indication: DRUG ABUSE
     Dosage: UNK

REACTIONS (2)
  - Toxicity to various agents [None]
  - Drug abuse [None]
